FAERS Safety Report 21448926 (Version 1)
Quarter: 2022Q4

REPORT INFORMATION
  Report Type: Spontaneous
  Country: US (occurrence: US)
  Receive Date: 20221013
  Receipt Date: 20221013
  Transmission Date: 20230113
  Serious: No
  Sender: FDA-Public Use
  Company Number: US-CIPLA LTD.-2022US05930

PATIENT
  Sex: Female

DRUGS (3)
  1. ALBUTEROL [Suspect]
     Active Substance: ALBUTEROL
     Indication: Chronic obstructive pulmonary disease
     Dosage: UNK
     Route: 065
     Dates: start: 20220713
  2. ALBUTEROL [Suspect]
     Active Substance: ALBUTEROL
     Dosage: 0.18 MILLIGRAM, QID (90 MCG, 2 PUFFS 4 TIMES DAILY)
     Dates: start: 20220915
  3. SYMBICORT [Concomitant]
     Active Substance: BUDESONIDE\FORMOTEROL FUMARATE DIHYDRATE
     Indication: Chronic obstructive pulmonary disease
     Dosage: UNK
     Route: 065
     Dates: start: 202207

REACTIONS (5)
  - Drug dose omission by device [Not Recovered/Not Resolved]
  - Dizziness [Not Recovered/Not Resolved]
  - Device ineffective [Unknown]
  - Device delivery system issue [Unknown]
  - Product leakage [Unknown]

NARRATIVE: CASE EVENT DATE: 20220901
